FAERS Safety Report 19486810 (Version 1)
Quarter: 2021Q3

REPORT INFORMATION
  Report Type: Spontaneous
  Country: US (occurrence: US)
  Receive Date: 20210702
  Receipt Date: 20210702
  Transmission Date: 20211014
  Serious: No
  Sender: FDA-Public Use
  Company Number: US-BAYER-2021-166429

PATIENT

DRUGS (2)
  1. BETACONNECT [Suspect]
     Active Substance: DEVICE
  2. BETASERON [Suspect]
     Active Substance: INTERFERON BETA-1B
     Dosage: UNK

REACTIONS (1)
  - Rash [None]
